FAERS Safety Report 7383570-3 (Version None)
Quarter: 2011Q1

REPORT INFORMATION
  Report Type: 
  Country: None (occurrence: None)
  Receive Date: 20110330
  Receipt Date: 20110324
  Transmission Date: 20110831
  Serious: Yes (Death)
  Sender: FDA-Public Use
  Company Number: US-PFIZER INC-2011065944

PATIENT
  Sex: Female

DRUGS (1)
  1. ZOLOFT [Suspect]
     Dosage: 100 MG, UNK

REACTIONS (1)
  - DEATH [None]
